FAERS Safety Report 8342197-7 (Version None)
Quarter: 2012Q2

REPORT INFORMATION
  Report Type: 
  Country: None (occurrence: None)
  Receive Date: 20120507
  Receipt Date: 20120424
  Transmission Date: 20120825
  Serious: Yes (Death)
  Sender: FDA-Public Use
  Company Number: JP-AMGEN-JPNCT2012028345

PATIENT
  Age: 57 Year
  Sex: Female
  Weight: 51 kg

DRUGS (15)
  1. ROMIPLOSTIM - KHK [Suspect]
     Dosage: 150 MUG/KG, QD
     Route: 058
     Dates: start: 20111130, end: 20111130
  2. KOLANTYL [Concomitant]
     Indication: PROPHYLAXIS
     Dosage: UNCERTAINTY
     Route: 048
  3. URSO 250 [Concomitant]
     Indication: LIVER DISORDER
     Dosage: UNCERTAINTY
     Route: 048
  4. ROMIPLOSTIM - KHK [Suspect]
     Dosage: 100 MUG/KG, QWK
     Route: 058
     Dates: start: 20110810, end: 20110817
  5. ROMIPLOSTIM - KHK [Suspect]
     Dosage: 50 MUG/KG, Q2WK
     Route: 058
     Dates: start: 20110824, end: 20110907
  6. ROMIPLOSTIM - KHK [Suspect]
     Dosage: 150 MUG/KG, Q2WK
     Route: 058
     Dates: start: 20111012, end: 20111109
  7. MIGLITOL [Concomitant]
     Indication: DIABETES MELLITUS
     Dosage: UNCERTAINTY
     Route: 048
  8. LANSOPRAZOLE [Concomitant]
     Indication: PROPHYLAXIS
     Dosage: UNCERTAINTY
     Route: 048
  9. DIOVAN [Concomitant]
     Indication: HYPERTENSION
     Dosage: UNCERTAINTY
     Route: 048
  10. ROMIPLOSTIM - KHK [Suspect]
     Indication: IDIOPATHIC THROMBOCYTOPENIC PURPURA
     Dosage: 50 MUG/KG, QWK
     Route: 058
     Dates: start: 20110720, end: 20110803
  11. PLETAL [Concomitant]
     Indication: PROPHYLAXIS
     Dosage: UNCERTAINTY
     Route: 048
  12. LASIX [Concomitant]
     Indication: OEDEMA
     Dosage: UNCERTAINTY
     Route: 048
  13. ROMIPLOSTIM - KHK [Suspect]
     Dosage: 100 MUG/KG, QWK
     Route: 058
     Dates: start: 20110921, end: 20111005
  14. PREDNISOLONE [Concomitant]
     Indication: IDIOPATHIC THROMBOCYTOPENIC PURPURA
     Route: 048
     Dates: start: 20080623, end: 20120103
  15. ROMIPLOSTIM - KHK [Suspect]
     Dosage: 200 MUG/KG, Q2WK
     Route: 058
     Dates: start: 20111214, end: 20111228

REACTIONS (2)
  - CEREBRAL INFARCTION [None]
  - SEPSIS [None]
